FAERS Safety Report 5249612-6 (Version None)
Quarter: 2007Q1

REPORT INFORMATION
  Report Type: 
  Country: None (occurrence: None)
  Receive Date: 20070228
  Receipt Date: 20060508
  Transmission Date: 20070707
  Serious: Yes (Other)
  Sender: FDA-Public Use
  Company Number: 362986074

PATIENT
  Age: 26 Year
  Sex: Female
  Weight: 56.8 kg

DRUGS (3)
  1. IMITREX [Suspect]
     Indication: MIGRAINE
     Dosage: 1INJ AS REQUIRED
     Route: 058
  2. INDERAL LA [Concomitant]
     Indication: MIGRAINE
     Route: 048
     Dates: start: 20060105
  3. TOPROL-XL [Concomitant]
     Indication: MIGRAINE
     Route: 048
     Dates: start: 20051101

REACTIONS (1)
  - INJECTION SITE REACTION [None]
